FAERS Safety Report 10307417 (Version 2)
Quarter: 2014Q3

REPORT INFORMATION
  Report Type: Spontaneous
  Country: IT (occurrence: IT)
  Receive Date: 20140716
  Receipt Date: 20140729
  Transmission Date: 20150326
  Serious: Yes (Other)
  Sender: FDA-Public Use
  Company Number: IT-AMGEN-ITASP2014052018

PATIENT
  Age: 60 Year
  Sex: Female

DRUGS (6)
  1. METFORAL [Concomitant]
     Active Substance: METFORMIN HYDROCHLORIDE
  2. PROLIA [Suspect]
     Active Substance: DENOSUMAB
     Indication: OSTEOPOROSIS
     Dosage: 60 MG/ML, CYCLICAL
     Route: 058
  3. XANAX [Concomitant]
     Active Substance: ALPRAZOLAM
     Dosage: 3 MG, UNK
  4. TOLEP [Concomitant]
     Active Substance: OXCARBAZEPINE
     Dosage: UNK MG, UNK
  5. CARDIOASPIRIN [Concomitant]
     Active Substance: ASPIRIN
     Dosage: UNK MG, UNK
  6. LYRICA [Concomitant]
     Active Substance: PREGABALIN
     Dosage: UNK MG, UNK

REACTIONS (1)
  - Deep vein thrombosis [Recovered/Resolved]

NARRATIVE: CASE EVENT DATE: 20140403
